FAERS Safety Report 21066810 (Version 5)
Quarter: 2023Q1

REPORT INFORMATION
  Report Type: Report from Study
  Country: US (occurrence: US)
  Receive Date: 20220712
  Receipt Date: 20230209
  Transmission Date: 20230418
  Serious: Yes (Other)
  Sender: FDA-Public Use
  Company Number: US-ABBVIE-22K-163-4461143-00

PATIENT
  Age: 81 Year
  Sex: Male

DRUGS (3)
  1. SKYRIZI [Suspect]
     Active Substance: RISANKIZUMAB-RZAA
     Indication: Psoriasis
     Route: 058
     Dates: start: 20220313
  2. SKYRIZI [Suspect]
     Active Substance: RISANKIZUMAB-RZAA
     Route: 058
  3. MODERNA COVID-19 VACCINE [Concomitant]
     Active Substance: ELASOMERAN
     Indication: COVID-19 immunisation
     Dosage: 1 IN ONCE
     Route: 030

REACTIONS (10)
  - Intracranial haematoma [Unknown]
  - Visual field defect [Not Recovered/Not Resolved]
  - Haemorrhagic stroke [Unknown]
  - Memory impairment [Unknown]
  - Burning sensation [Not Recovered/Not Resolved]
  - Psoriasis [Unknown]
  - Unevaluable event [Not Recovered/Not Resolved]
  - Hypertension [Unknown]
  - Dysuria [Unknown]
  - Cerebrovascular accident [Unknown]

NARRATIVE: CASE EVENT DATE: 20220630
